FAERS Safety Report 21835722 (Version 5)
Quarter: 2024Q3

REPORT INFORMATION
  Report Type: Spontaneous
  Country: GB (occurrence: GB)
  Receive Date: 20230109
  Receipt Date: 20240702
  Transmission Date: 20241017
  Serious: Yes (Other)
  Sender: ROCHE
  Company Number: None

PATIENT
  Sex: Male

DRUGS (18)
  1. RITUXIMAB [Suspect]
     Active Substance: RITUXIMAB
     Indication: Richter^s syndrome
     Route: 065
     Dates: start: 20150109, end: 20160201
  2. RITUXIMAB [Suspect]
     Active Substance: RITUXIMAB
     Route: 065
     Dates: start: 20210108, end: 20210109
  3. RITUXIMAB [Suspect]
     Active Substance: RITUXIMAB
     Route: 065
     Dates: start: 20200106, end: 20200110
  4. RITUXIMAB [Suspect]
     Active Substance: RITUXIMAB
     Route: 065
     Dates: start: 20190111, end: 20200106
  5. FLUDARABINE [Suspect]
     Active Substance: FLUDARABINE PHOSPHATE
     Indication: Richter^s syndrome
     Route: 065
     Dates: start: 20150109, end: 20160102
  6. VENETOCLAX [Suspect]
     Active Substance: VENETOCLAX
     Indication: Richter^s syndrome
     Route: 048
     Dates: start: 20190111, end: 20200106
  7. POLATUZUMAB VEDOTIN [Suspect]
     Active Substance: POLATUZUMAB VEDOTIN
     Indication: Richter^s syndrome
     Route: 065
     Dates: start: 20210108, end: 20210109
  8. CYCLOPHOSPHAMIDE [Suspect]
     Active Substance: CYCLOPHOSPHAMIDE
     Indication: Richter^s syndrome
     Route: 065
     Dates: start: 20150109, end: 20160102
  9. CYCLOPHOSPHAMIDE [Suspect]
     Active Substance: CYCLOPHOSPHAMIDE
     Route: 065
     Dates: start: 20200106, end: 20200110
  10. VINCRISTINE [Suspect]
     Active Substance: VINCRISTINE
     Indication: Richter^s syndrome
     Route: 065
     Dates: start: 20200106, end: 20200110
  11. PREDNISONE [Suspect]
     Active Substance: PREDNISONE
     Indication: Richter^s syndrome
     Dosage: SOLUTION
     Route: 065
     Dates: start: 20200106, end: 20200110
  12. GEMCITABINE [Suspect]
     Active Substance: GEMCITABINE
     Indication: Richter^s syndrome
     Route: 065
     Dates: start: 20200111, end: 20210101
  13. IMBRUVICA [Suspect]
     Active Substance: IBRUTINIB
     Indication: Richter^s syndrome
     Route: 048
     Dates: start: 20200106, end: 20200110
  14. DOXORUBICIN HYDROCHLORIDE [Suspect]
     Active Substance: DOXORUBICIN HYDROCHLORIDE
     Indication: Richter^s syndrome
     Route: 065
     Dates: start: 20200106, end: 20200110
  15. BENDAMUSTINE HYDROCHLORIDE [Suspect]
     Active Substance: BENDAMUSTINE HYDROCHLORIDE
     Indication: Richter^s syndrome
     Dosage: FREQUENCY: ONCE DAILY
     Route: 065
     Dates: start: 20210108, end: 20210109
  16. OXALIPLATIN [Suspect]
     Active Substance: OXALIPLATIN
     Indication: Richter^s syndrome
     Route: 065
     Dates: start: 20200111, end: 20210101
  17. CARBOPLATIN [Suspect]
     Active Substance: CARBOPLATIN
     Indication: Richter^s syndrome
     Route: 065
     Dates: start: 20200111, end: 20210101
  18. CISPLATIN [Suspect]
     Active Substance: CISPLATIN
     Indication: Richter^s syndrome
     Route: 065
     Dates: start: 20200111, end: 20210101

REACTIONS (1)
  - Richter^s syndrome [Unknown]
